FAERS Safety Report 7091490-7 (Version None)
Quarter: 2010Q4

REPORT INFORMATION
  Report Type: 
  Country: None (occurrence: None)
  Receive Date: 20101109
  Receipt Date: 20101104
  Transmission Date: 20110411
  Serious: Yes (Other)
  Sender: FDA-Public Use
  Company Number: US-PFIZER INC-2010141067

PATIENT
  Sex: Female
  Weight: 63.492 kg

DRUGS (6)
  1. DETROL LA [Suspect]
     Indication: HYPERTONIC BLADDER
     Dosage: 2 MG, DAILY
     Route: 048
     Dates: start: 20100930, end: 20101104
  2. COREG [Concomitant]
     Indication: CARDIAC DISORDER
     Dosage: UNK
  3. MACROBID [Concomitant]
     Dosage: UNK
  4. EVISTA [Concomitant]
     Indication: CARTILAGE ATROPHY
     Dosage: UNK
  5. TRAZODONE [Concomitant]
     Indication: DEPRESSION
     Dosage: UNK
  6. TRANXENE [Concomitant]
     Indication: ANXIETY
     Dosage: 3.75 MG, AS NEEDED

REACTIONS (4)
  - ANAEMIA [None]
  - CARTILAGE OPERATION [None]
  - POLLAKIURIA [None]
  - WEIGHT DECREASED [None]
